FAERS Safety Report 8619644-6 (Version None)
Quarter: 2012Q3

REPORT INFORMATION
  Report Type: 
  Country: None (occurrence: None)
  Receive Date: 20120824
  Receipt Date: 20120815
  Transmission Date: 20120928
  Serious: Yes (Hospitalization, Other)
  Sender: FDA-Public Use
  Company Number: US-JNJFOC-20120519543

PATIENT
  Sex: Male
  Weight: 47 kg

DRUGS (5)
  1. MELATONIN [Concomitant]
     Indication: SLEEP DISORDER
     Route: 065
  2. SODIUM FLUORIDE [Concomitant]
     Indication: TOOTH DISORDER
     Route: 065
  3. TRILEPTAL [Concomitant]
     Indication: EPILEPSY
     Route: 065
     Dates: start: 20120314
  4. CALCIUM CARBONATE [Concomitant]
     Indication: NUTRITIONAL SUPPORT
     Route: 065
  5. TOPAMAX [Suspect]
     Indication: EPILEPSY
     Dosage: STARTED PRIOR TO 2002 ON AN UNSPECIFIED DATE
     Route: 048
     Dates: end: 20120425

REACTIONS (2)
  - ENCEPHALOPATHY [None]
  - HEPATIC FAILURE [None]
